FAERS Safety Report 4506791-3 (Version None)
Quarter: 2004Q4

REPORT INFORMATION
  Report Type: 
  Country: None (occurrence: None)
  Receive Date: 20041117
  Receipt Date: 20041109
  Transmission Date: 20050328
  Serious: Yes (Death)
  Sender: FDA-Public Use
  Company Number: 2004US001368

PATIENT
  Age: 73 Year
  Sex: Female

DRUGS (1)
  1. ADENOSCAN [Suspect]
     Indication: SCAN MYOCARDIAL PERFUSION
     Dosage: 76.40 MG, TOTAL DOSE, INTRAVENOUS
     Route: 042

REACTIONS (1)
  - RESPIRATORY ARREST [None]
